FAERS Safety Report 8225908-0 (Version None)
Quarter: 2012Q1

REPORT INFORMATION
  Report Type: 
  Country: None (occurrence: None)
  Receive Date: 20120321
  Receipt Date: 20120313
  Transmission Date: 20120608
  Serious: Yes (Hospitalization, Other)
  Sender: FDA-Public Use
  Company Number: US-CELGENEUS-163-21880-12022014

PATIENT
  Sex: Male

DRUGS (9)
  1. LABETALOL HCL [Concomitant]
     Dosage: 100 MILLIGRAM
     Route: 065
  2. REVLIMID [Suspect]
     Route: 048
     Dates: start: 20120101
  3. VITAMIN B-12 [Concomitant]
     Dosage: 1000 MICROGRAM
     Route: 065
  4. AREDIA [Concomitant]
     Dosage: 90 MILLIGRAM
     Route: 065
  5. REVLIMID [Suspect]
     Dosage: 10-15 MG
     Route: 048
     Dates: start: 20090601
  6. PERCOCET [Concomitant]
     Dosage: 5/325
     Route: 065
  7. METFORMIN HCL [Concomitant]
     Dosage: 1000 MILLIGRAM
     Route: 065
  8. REVLIMID [Suspect]
     Indication: MULTIPLE MYELOMA
     Dosage: 25 MILLIGRAM
     Route: 048
     Dates: start: 20081101
  9. GABAPENTIN [Concomitant]
     Dosage: 300 MILLIGRAM
     Route: 065

REACTIONS (2)
  - OSTEOARTHRITIS [None]
  - LYME DISEASE [None]
